FAERS Safety Report 4476039-7 (Version None)
Quarter: 2004Q4

REPORT INFORMATION
  Report Type: 
  Country: None (occurrence: None)
  Receive Date: 20041012
  Receipt Date: 20040929
  Transmission Date: 20050328
  Serious: Yes (Other)
  Sender: FDA-Public Use
  Company Number: 2004071904

PATIENT
  Age: 29 Year
  Sex: Female

DRUGS (2)
  1. RELPAX [Suspect]
     Indication: MIGRAINE
     Dosage: 40 MG (40 MG, 1 IN 1 AS NECESSARY), ORAL
     Route: 048
     Dates: start: 20040101
  2. CABERGOLINE [Suspect]
     Indication: PITUITARY TUMOUR
     Dosage: 0.25 MG (0.25 MG, 2 IN 1 WK), ORAL
     Route: 048
     Dates: start: 20040920

REACTIONS (5)
  - DIARRHOEA [None]
  - HEART RATE INCREASED [None]
  - PITUITARY TUMOUR [None]
  - VISION BLURRED [None]
  - VOMITING [None]
